FAERS Safety Report 9134478 (Version 2)
Quarter: 2013Q2

REPORT INFORMATION
  Report Type: Spontaneous
  Country: NL (occurrence: NL)
  Receive Date: 20130304
  Receipt Date: 20130417
  Transmission Date: 20140414
  Serious: Yes (Life-Threatening, Hospitalization)
  Sender: FDA-Public Use
  Company Number: NL-BRISTOL-MYERS SQUIBB COMPANY-17415852

PATIENT
  Age: 14 Year
  Sex: Male
  Weight: 78 kg

DRUGS (4)
  1. ABILIFY TABS 10 MG [Suspect]
     Indication: OPPOSITIONAL DEFIANT DISORDER
     Dates: start: 201201, end: 20130215
  2. ABILIFY TABS 10 MG [Suspect]
     Indication: AUTISM
     Dates: start: 201201, end: 20130215
  3. ABILIFY TABS 10 MG [Suspect]
     Indication: ABNORMAL BEHAVIOUR
     Dates: start: 201201, end: 20130215
  4. CONCERTA [Concomitant]

REACTIONS (3)
  - Ketoacidosis [Not Recovered/Not Resolved]
  - Diabetes mellitus [Not Recovered/Not Resolved]
  - Insulin resistance [Recovering/Resolving]
